FAERS Safety Report 13649420 (Version 5)
Quarter: 2018Q2

REPORT INFORMATION
  Report Type: Spontaneous
  Country: DE (occurrence: DE)
  Receive Date: 20170613
  Receipt Date: 20180419
  Transmission Date: 20180711
  Serious: Yes (Hospitalization, Other)
  Sender: FDA-Public Use
  Company Number: DE-AUROBINDO-AUR-APL-2017-35188

PATIENT
  Age: 78 Year
  Sex: Male

DRUGS (84)
  1. HYDROCORTISONE. [Concomitant]
     Active Substance: HYDROCORTISONE
     Indication: PRODUCT USED FOR UNKNOWN INDICATION
     Route: 065
  2. MELATONIN [Concomitant]
     Active Substance: MELATONIN
     Dosage: ()
     Route: 065
  3. METOPROLOL. [Concomitant]
     Active Substance: METOPROLOL
     Dosage: ()
     Route: 065
  4. FENTANYL. [Concomitant]
     Active Substance: FENTANYL
     Dosage: ()
     Route: 065
  5. PANTOPRAZOLE [Concomitant]
     Active Substance: PANTOPRAZOLE
     Indication: PRODUCT USED FOR UNKNOWN INDICATION
     Route: 065
  6. CLONIDINE. [Concomitant]
     Active Substance: CLONIDINE
     Indication: PRODUCT USED FOR UNKNOWN INDICATION
     Route: 065
  7. EPINEPHRINE. [Concomitant]
     Active Substance: EPINEPHRINE
     Dosage: ()
     Route: 065
  8. INSULIN [Concomitant]
     Active Substance: INSULIN NOS
     Indication: PRODUCT USED FOR UNKNOWN INDICATION
     Route: 065
  9. GRANISETRON [Concomitant]
     Active Substance: GRANISETRON
     Dosage: 2 SPORADIC DOSES ()
     Route: 065
  10. MEROPENEM. [Interacting]
     Active Substance: MEROPENEM
     Indication: BACTERIAL INFECTION
     Dosage: ()
     Route: 042
  11. HYDROCORTISONE. [Concomitant]
     Active Substance: HYDROCORTISONE
     Dosage: ()
     Route: 065
  12. MELATONIN [Concomitant]
     Active Substance: MELATONIN
     Indication: PRODUCT USED FOR UNKNOWN INDICATION
     Route: 065
  13. METOPROLOL. [Concomitant]
     Active Substance: METOPROLOL
     Dosage: ()
     Route: 065
  14. FENTANYL. [Concomitant]
     Active Substance: FENTANYL
     Indication: PRODUCT USED FOR UNKNOWN INDICATION
     Route: 065
  15. CLONIDINE. [Concomitant]
     Active Substance: CLONIDINE
     Dosage: ()
     Route: 065
  16. COLISTIN [Concomitant]
     Active Substance: COLISTIN
     Dosage: ()
     Route: 065
  17. EPINEPHRINE. [Concomitant]
     Active Substance: EPINEPHRINE
     Dosage: ()
     Route: 065
  18. IPRATROPIUM BROMIDE. [Concomitant]
     Active Substance: IPRATROPIUM BROMIDE
     Dosage: ()
     Route: 065
  19. SALBUTAMOL [Concomitant]
     Active Substance: ALBUTEROL
     Dosage: ()
     Route: 065
  20. DIMENHYDRINATE. [Concomitant]
     Active Substance: DIMENHYDRINATE
     Dosage: 3 SPORADIC DOSES ()
     Route: 065
  21. GRANISETRON [Concomitant]
     Active Substance: GRANISETRON
     Dosage: 2 SPORADIC DOSES ()
     Route: 065
  22. DIPYRONE [Concomitant]
     Active Substance: DIPYRONE
     Indication: PRODUCT USED FOR UNKNOWN INDICATION
     Dosage: 2 SPORADIC DOSES ()
     Route: 065
  23. ATORVASTATIN [Concomitant]
     Active Substance: ATORVASTATIN
     Dosage: ()
     Route: 065
  24. OXYCODONE [Concomitant]
     Active Substance: OXYCODONE
     Dosage: ()
     Route: 065
  25. FENTANYL. [Concomitant]
     Active Substance: FENTANYL
     Dosage: ()
     Route: 065
  26. SUFENTANIL [Concomitant]
     Active Substance: SUFENTANIL
     Indication: PRODUCT USED FOR UNKNOWN INDICATION
     Route: 065
  27. COLISTIN [Concomitant]
     Active Substance: COLISTIN
     Indication: PRODUCT USED FOR UNKNOWN INDICATION
     Route: 065
  28. PREGABALIN. [Concomitant]
     Active Substance: PREGABALIN
     Dosage: ()
     Route: 065
  29. TIGECYCLINE. [Concomitant]
     Active Substance: TIGECYCLINE
     Indication: PRODUCT USED FOR UNKNOWN INDICATION
     Route: 065
  30. HALOPERIDOL. [Concomitant]
     Active Substance: HALOPERIDOL
     Indication: PRODUCT USED FOR UNKNOWN INDICATION
     Route: 065
  31. METAMIZOLE [Concomitant]
     Active Substance: METAMIZOLE
     Dosage: UNK (2 DOSES) ()
  32. PROPOFOL. [Concomitant]
     Active Substance: PROPOFOL
     Dosage: 1 SPORADIC DOSES ()
     Route: 065
  33. VORICONAZOLE. [Interacting]
     Active Substance: VORICONAZOLE
     Indication: INFECTION
     Dosage: UNK ()
     Route: 042
  34. METOPROLOL. [Concomitant]
     Active Substance: METOPROLOL
     Indication: PRODUCT USED FOR UNKNOWN INDICATION
     Route: 065
  35. OXYCODONE [Concomitant]
     Active Substance: OXYCODONE
     Dosage: ()
     Route: 065
  36. PANTOPRAZOLE [Concomitant]
     Active Substance: PANTOPRAZOLE
     Dosage: ()
     Route: 065
  37. EPINEPHRINE. [Concomitant]
     Active Substance: EPINEPHRINE
     Indication: PRODUCT USED FOR UNKNOWN INDICATION
     Route: 065
  38. INSULIN [Concomitant]
     Active Substance: INSULIN NOS
     Dosage: ()
     Route: 065
  39. LORAZEPAM. [Concomitant]
     Active Substance: LORAZEPAM
     Indication: PRODUCT USED FOR UNKNOWN INDICATION
     Route: 065
  40. LORAZEPAM. [Concomitant]
     Active Substance: LORAZEPAM
     Dosage: 2 SPORADIC DOSES ()
     Route: 065
  41. LORAZEPAM. [Concomitant]
     Active Substance: LORAZEPAM
     Dosage: 2 SPORADIC DOSES ()
     Route: 065
  42. METAMIZOLE [Concomitant]
     Active Substance: METAMIZOLE
     Indication: PRODUCT USED FOR UNKNOWN INDICATION
     Route: 065
  43. METOCLOPRAMIDE. [Concomitant]
     Active Substance: METOCLOPRAMIDE
     Indication: PRODUCT USED FOR UNKNOWN INDICATION
     Route: 065
  44. AMLODIPINE [Concomitant]
     Active Substance: AMLODIPINE BESYLATE
     Indication: PRODUCT USED FOR UNKNOWN INDICATION
     Route: 065
  45. AMLODIPINE [Concomitant]
     Active Substance: AMLODIPINE BESYLATE
     Dosage: ()
     Route: 065
  46. HYDROCORTISONE. [Concomitant]
     Active Substance: HYDROCORTISONE
     Dosage: ()
     Route: 065
  47. PANTOPRAZOLE [Concomitant]
     Active Substance: PANTOPRAZOLE
     Dosage: ()
     Route: 065
  48. HEPARIN [Concomitant]
     Active Substance: HEPARIN SODIUM
     Dosage: ()
     Route: 065
  49. SALBUTAMOL [Concomitant]
     Active Substance: ALBUTEROL
     Dosage: ()
     Route: 065
  50. GRANISETRON [Concomitant]
     Active Substance: GRANISETRON
     Indication: PRODUCT USED FOR UNKNOWN INDICATION
     Route: 065
  51. HALOPERIDOL. [Concomitant]
     Active Substance: HALOPERIDOL
     Dosage: 3 SPORADIC DOSES ()
     Route: 065
  52. HALOPERIDOL. [Concomitant]
     Active Substance: HALOPERIDOL
     Dosage: 3 SPORADIC DOSES ()
     Route: 065
  53. METOCLOPRAMIDE. [Concomitant]
     Active Substance: METOCLOPRAMIDE
     Dosage: 4 SPORADIC DOSES ()
     Route: 065
  54. PROPOFOL. [Concomitant]
     Active Substance: PROPOFOL
     Dosage: 1 SPORADIC DOSES ()
     Route: 065
  55. MEROPENEM. [Interacting]
     Active Substance: MEROPENEM
     Indication: PRODUCT USED FOR UNKNOWN INDICATION
     Route: 065
  56. SUFENTANIL [Concomitant]
     Active Substance: SUFENTANIL
     Dosage: ()
     Route: 065
  57. COLISTIN [Concomitant]
     Active Substance: COLISTIN
     Dosage: ()
     Route: 065
  58. FUROSEMIDE. [Concomitant]
     Active Substance: FUROSEMIDE
     Dosage: ()
     Route: 065
  59. HEPARIN [Concomitant]
     Active Substance: HEPARIN SODIUM
     Indication: PRODUCT USED FOR UNKNOWN INDICATION
     Route: 065
  60. TIGECYCLINE. [Concomitant]
     Active Substance: TIGECYCLINE
     Dosage: ()
     Route: 065
  61. TIGECYCLINE. [Concomitant]
     Active Substance: TIGECYCLINE
     Dosage: ()
     Route: 065
  62. DIMENHYDRINATE. [Concomitant]
     Active Substance: DIMENHYDRINATE
     Dosage: 3 SPORADIC DOSES ()
     Route: 065
  63. METAMIZOLE [Concomitant]
     Active Substance: METAMIZOLE
     Dosage: UNK (2 DOSES) ()
  64. DIPYRONE [Concomitant]
     Active Substance: DIPYRONE
     Dosage: 2 SPORADIC DOSES ()
     Route: 065
  65. ATORVASTATIN [Concomitant]
     Active Substance: ATORVASTATIN
     Dosage: ()
     Route: 065
  66. OXYCODONE [Concomitant]
     Active Substance: OXYCODONE
     Indication: PRODUCT USED FOR UNKNOWN INDICATION
     Route: 065
  67. SUFENTANIL [Concomitant]
     Active Substance: SUFENTANIL
     Dosage: ()
     Route: 065
  68. FUROSEMIDE. [Concomitant]
     Active Substance: FUROSEMIDE
     Indication: PRODUCT USED FOR UNKNOWN INDICATION
     Route: 065
  69. FUROSEMIDE. [Concomitant]
     Active Substance: FUROSEMIDE
     Dosage: ()
     Route: 065
  70. HEPARIN [Concomitant]
     Active Substance: HEPARIN SODIUM
     Dosage: ()
     Route: 065
  71. IPRATROPIUM BROMIDE. [Concomitant]
     Active Substance: IPRATROPIUM BROMIDE
     Dosage: ()
     Route: 065
  72. PREGABALIN. [Concomitant]
     Active Substance: PREGABALIN
     Indication: PRODUCT USED FOR UNKNOWN INDICATION
     Route: 065
  73. PREGABALIN. [Concomitant]
     Active Substance: PREGABALIN
     Dosage: ()
     Route: 065
  74. SALBUTAMOL [Concomitant]
     Active Substance: ALBUTEROL
     Indication: PRODUCT USED FOR UNKNOWN INDICATION
     Route: 065
  75. DIMENHYDRINATE. [Concomitant]
     Active Substance: DIMENHYDRINATE
     Indication: PRODUCT USED FOR UNKNOWN INDICATION
     Route: 065
  76. METOCLOPRAMIDE. [Concomitant]
     Active Substance: METOCLOPRAMIDE
     Dosage: 4 SPORADIC DOSES ()
     Route: 065
  77. PROPOFOL. [Concomitant]
     Active Substance: PROPOFOL
     Indication: PRODUCT USED FOR UNKNOWN INDICATION
     Route: 065
  78. VORICONAZOLE. [Suspect]
     Active Substance: VORICONAZOLE
     Indication: PRODUCT USED FOR UNKNOWN INDICATION
     Route: 042
  79. AMLODIPINE [Concomitant]
     Active Substance: AMLODIPINE BESYLATE
     Dosage: ()
     Route: 065
  80. ATORVASTATIN [Concomitant]
     Active Substance: ATORVASTATIN
     Indication: PRODUCT USED FOR UNKNOWN INDICATION
     Route: 065
  81. MELATONIN [Concomitant]
     Active Substance: MELATONIN
     Dosage: ()
     Route: 065
  82. CLONIDINE. [Concomitant]
     Active Substance: CLONIDINE
     Dosage: ()
     Route: 065
  83. INSULIN [Concomitant]
     Active Substance: INSULIN NOS
     Dosage: ()
     Route: 065
  84. IPRATROPIUM BROMIDE. [Concomitant]
     Active Substance: IPRATROPIUM BROMIDE
     Indication: PRODUCT USED FOR UNKNOWN INDICATION
     Route: 065

REACTIONS (4)
  - Drug clearance [Unknown]
  - Drug interaction [Recovered/Resolved]
  - Drug clearance decreased [Recovered/Resolved]
  - Drug level increased [Recovered/Resolved]
